FAERS Safety Report 5358178-1 (Version None)
Quarter: 2007Q2

REPORT INFORMATION
  Report Type: 
  Country: None (occurrence: None)
  Receive Date: 20070530
  Receipt Date: 20061129
  Transmission Date: 20071010
  Serious: Yes (Hospitalization, Other)
  Sender: FDA-Public Use
  Company Number: US200605004790

PATIENT
  Age: 31 Year
  Sex: Male
  Weight: 86.2 kg

DRUGS (2)
  1. ZYPREXA [Suspect]
     Indication: SCHIZOPHRENIA
     Dosage: 10 MG
     Dates: start: 19980301, end: 19990501
  2. DEPAKOTE [Concomitant]

REACTIONS (7)
  - DIABETES MELLITUS [None]
  - HYPERLIPIDAEMIA [None]
  - HYPERTENSION [None]
  - METABOLIC DISORDER [None]
  - PANCREATITIS [None]
  - VISION BLURRED [None]
  - WEIGHT DECREASED [None]
